FAERS Safety Report 23140890 (Version 2)
Quarter: 2023Q4

REPORT INFORMATION
  Report Type: Report from Study
  Country: US (occurrence: US)
  Receive Date: 20231103
  Receipt Date: 20231220
  Transmission Date: 20240109
  Serious: Yes (Hospitalization, Other)
  Sender: FDA-Public Use
  Company Number: US-ABBVIE-5478128

PATIENT
  Age: 62 Year
  Sex: Male
  Weight: 95.254 kg

DRUGS (3)
  1. VENCLEXTA [Suspect]
     Active Substance: VENETOCLAX
     Indication: Chronic lymphocytic leukaemia
     Dosage: 1 TABLET, FORM STRENGTH: 100MG
     Route: 048
     Dates: start: 202311
  2. VENCLEXTA [Suspect]
     Active Substance: VENETOCLAX
     Indication: Chronic lymphocytic leukaemia
     Dosage: 1 TABLET, FORM STRENGTH: 100MG
     Route: 048
     Dates: start: 2022, end: 202309
  3. VENCLEXTA [Suspect]
     Active Substance: VENETOCLAX
     Indication: Chronic lymphocytic leukaemia
     Dosage: FORM STRENGTH: 100MG
     Route: 048
     Dates: start: 2020

REACTIONS (5)
  - Peripheral swelling [Recovered/Resolved]
  - Bacterial infection [Recovered/Resolved]
  - Limb operation [Recovering/Resolving]
  - Chronic lymphocytic leukaemia recurrent [Recovering/Resolving]
  - Cyst [Recovered/Resolved]

NARRATIVE: CASE EVENT DATE: 20230901
